FAERS Safety Report 7599163-9 (Version None)
Quarter: 2011Q3

REPORT INFORMATION
  Report Type: 
  Country: None (occurrence: None)
  Receive Date: 20110711
  Receipt Date: 20090813
  Transmission Date: 20111222
  Serious: Yes (Other)
  Sender: FDA-Public Use
  Company Number: US-BAYER-200929820NA

PATIENT
  Age: 75 Year
  Sex: Male
  Weight: 80.272 kg

DRUGS (34)
  1. TRASYLOL [Suspect]
     Dosage: 200 ML BOLUS
     Route: 042
     Dates: start: 20051010, end: 20051010
  2. XOPENEX [Concomitant]
     Dosage: 0.65 MG, TID
  3. PROTONIX [Concomitant]
     Dosage: 10 MG, QD
     Route: 048
     Dates: start: 20050912
  4. ASCRIPTIN [Concomitant]
     Dosage: 5 G, QD
     Route: 048
  5. VERSED [Concomitant]
     Dosage: 5 ML, UNK
     Route: 042
     Dates: start: 20051010
  6. TRASYLOL [Suspect]
     Indication: MITRAL VALVE REPLACEMENT
     Dosage: SOLUTION FOR INFUSION
     Route: 042
     Dates: start: 20051010
  7. PRAVACHOL [Concomitant]
     Dosage: 20 MG, QD
     Route: 048
  8. NIFEREX [Concomitant]
     Dosage: 150 MG, BID
     Route: 048
  9. RED BLOOD CELLS [Concomitant]
     Dosage: 2 U, UNK
     Route: 042
     Dates: start: 20051010
  10. OPTIRAY 350 [Concomitant]
     Indication: CATHETERISATION CARDIAC
     Dosage: 280 ML, UNK
     Dates: start: 20051006
  11. ATENOLOL [Concomitant]
     Dosage: 50 MG, BID
     Route: 048
  12. PERCOCET [Concomitant]
     Dosage: AS NEEDED
     Route: 048
     Dates: start: 20050912
  13. PRAVACHOL [Concomitant]
     Dosage: 20 MG, QD LONG TERM USE
     Route: 048
  14. BIAXIN [Concomitant]
     Dosage: 500 MG, BID
     Route: 048
  15. VICODIN [Concomitant]
     Dosage: 5MG, 1-2 TABLETS EVERY 4 HOURS AS NEEDED
     Route: 048
  16. HEPARIN [Concomitant]
     Dosage: 30000 U, UNK
     Route: 042
     Dates: start: 20051010
  17. ANCEF [Concomitant]
     Dosage: 2 G, UNK
     Route: 042
     Dates: start: 20051010
  18. TRASYLOL [Suspect]
     Dosage: 200 ML, UNK PUMP PRIME
     Dates: start: 20051010, end: 20051010
  19. CARTIA XT [Concomitant]
     Dosage: 250 MG, QD
     Route: 048
  20. LASIX [Concomitant]
     Dosage: 60 MG, QD
     Route: 048
  21. MS CONTIN [Concomitant]
     Dosage: 15 MG, TID
     Route: 048
  22. FENTANYL [Concomitant]
     Dosage: 50 MCG
     Route: 042
     Dates: start: 20051006
  23. FENTANYL [Concomitant]
     Dosage: 30
     Route: 042
     Dates: start: 20051010
  24. HEPARIN [Concomitant]
     Dosage: 10000 U PUMP PRIME
     Dates: start: 20051010
  25. PROTAMINE SULFATE [Concomitant]
     Dosage: 500 MG, UNK
     Route: 042
     Dates: start: 20051010
  26. LASIX [Concomitant]
     Dosage: 20 MG, QD LONG TERM USE
     Route: 048
  27. COUMADIN [Concomitant]
     Dosage: 5 MG, QD
     Route: 048
  28. NYSTATIN [Concomitant]
     Dosage: 5 ML, QID
     Route: 048
  29. XANAX [Concomitant]
     Dosage: 0.25 MG, QD
     Route: 048
  30. HEPARIN [Concomitant]
     Dosage: 5000 U
     Route: 042
     Dates: start: 20051010
  31. TRASYLOL [Suspect]
     Dosage: 50ML/HR INFUSION
     Route: 042
     Dates: start: 20051010, end: 20051010
  32. ASCRIPTIN [Concomitant]
     Dosage: 81 MG, QD
     Route: 048
     Dates: start: 20050912
  33. RESTORIL [Concomitant]
     Dosage: LONG TERM USE
     Route: 048
  34. VERSED [Concomitant]
     Dosage: 2 MG, UNK
     Route: 042
     Dates: start: 20051006

REACTIONS (10)
  - RENAL IMPAIRMENT [None]
  - ANXIETY [None]
  - INJURY [None]
  - FEAR [None]
  - EMOTIONAL DISTRESS [None]
  - UNEVALUABLE EVENT [None]
  - RENAL INJURY [None]
  - RENAL FAILURE [None]
  - PAIN [None]
  - STRESS [None]
